FAERS Safety Report 15952485 (Version 1)
Quarter: 2019Q1

REPORT INFORMATION
  Report Type: Spontaneous
  Country: US (occurrence: US)
  Receive Date: 20190212
  Receipt Date: 20190212
  Transmission Date: 20190417
  Serious: No
  Sender: FDA-Public Use
  Company Number: US-PFIZER INC-2019055473

PATIENT
  Age: 42 Year
  Sex: Male
  Weight: 99.79 kg

DRUGS (2)
  1. AFRINE [Concomitant]
     Dosage: UNK
  2. ADVIL COLD AND SINUS [Suspect]
     Active Substance: IBUPROFEN\PSEUDOEPHEDRINE HYDROCHLORIDE
     Indication: SINUS CONGESTION
     Dosage: 6 DF, DAILY [[IBUPROFEN 200 MG/ PSEUDOEPHEDRINE HCL 30 MG]]

REACTIONS (1)
  - Drug ineffective [Unknown]
